FAERS Safety Report 23784450 (Version 1)
Quarter: 2024Q2

REPORT INFORMATION
  Report Type: Spontaneous
  Country: US (occurrence: None)
  Receive Date: 20240425
  Receipt Date: 20240425
  Transmission Date: 20240716
  Serious: Yes (Other)
  Sender: FDA-Public Use
  Company Number: None

PATIENT
  Age: 67 Year
  Sex: Female
  Weight: 64.35 kg

DRUGS (9)
  1. PROLIA [Suspect]
     Active Substance: DENOSUMAB
     Indication: Osteoporosis
     Dosage: OTHER QUANTITY : 1 INJECTION(S);?OTHER FREQUENCY : INJECTION 2X/YEAR;?
     Route: 058
     Dates: start: 20240220
  2. AMOXICILLIN [Concomitant]
     Active Substance: AMOXICILLIN
  3. VITAMIN D [Concomitant]
     Active Substance: VITAMIN D NOS
  4. VITAMIN K [Concomitant]
     Active Substance: PHYTONADIONE
  5. COENZYME Q10 [Concomitant]
     Active Substance: DIETARY SUPPLEMENT\UBIDECARENONE
  6. BIOTIN [Concomitant]
     Active Substance: BIOTIN
  7. D-MANNOSE [Concomitant]
  8. MULTI-VITAMIN [Concomitant]
     Active Substance: .ALPHA.-TOCOPHEROL ACETATE, DL-\ASCORBIC ACID\CYANOCOBALAMIN\FLUORIDE ION\FOLIC ACID\NIACIN\PYRIDOXI
  9. probiotic [Concomitant]

REACTIONS (5)
  - Bone pain [None]
  - Arthralgia [None]
  - Arthralgia [None]
  - Myalgia [None]
  - Cystitis [None]

NARRATIVE: CASE EVENT DATE: 20240311
